FAERS Safety Report 5648394-3 (Version None)
Quarter: 2008Q1

REPORT INFORMATION
  Report Type: 
  Country: None (occurrence: None)
  Receive Date: 20080131
  Receipt Date: 20070930
  Transmission Date: 20080703
  Serious: No
  Sender: FDA-Public Use
  Company Number: 2005PV004128

PATIENT
  Age: 57 Year
  Sex: Female
  Weight: 78 kg

DRUGS (12)
  1. EXENATIDE (EXENATIDE)PEN, DISPOSABLE [Suspect]
     Indication: TYPE 2 DIABETES MELLITUS
     Dosage: 5, 10 UG EACH MORNING, SUBCUTANEOUS
     Route: 058
     Dates: start: 20051001, end: 20051218
  2. EXENATIDE (EXENATIDE)PEN, DISPOSABLE [Suspect]
     Indication: TYPE 2 DIABETES MELLITUS
     Dosage: 5, 10 UG EACH MORNING, SUBCUTANEOUS
     Route: 058
     Dates: start: 20051219, end: 20060201
  3. EXENATIDE (EXENATIDE)PEN, DISPOSABLE [Suspect]
     Indication: TYPE 2 DIABETES MELLITUS
     Dosage: 5, 10 UG EACH MORNING, SUBCUTANEOUS
     Route: 058
     Dates: start: 20051001
  4. EXENATIDE (EXENATIDE)PEN, DISPOSABLE [Suspect]
     Indication: TYPE 2 DIABETES MELLITUS
     Dosage: 5, 10 UG EACH MORNING, SUBCUTANEOUS
     Route: 058
     Dates: start: 20060201
  5. EXENATIDE (EXENATIDE)PEN, DISPOSABLE [Suspect]
  6. EXENATIDE (EXENATIDE)PEN, DISPOSABLE [Suspect]
  7. GLUCOPHAGE [Concomitant]
  8. ACTOS [Concomitant]
  9. DIOVAN [Concomitant]
  10. VYTORIN [Concomitant]
  11. LEXAPRO [Concomitant]
  12. METANEX [Concomitant]

REACTIONS (11)
  - ABDOMINAL DISTENSION [None]
  - BLOOD GLUCOSE INCREASED [None]
  - DIZZINESS [None]
  - DRUG INEFFECTIVE [None]
  - DYSGEUSIA [None]
  - ERUCTATION [None]
  - HEADACHE [None]
  - INCORRECT DOSE ADMINISTERED [None]
  - INJECTION SITE PAIN [None]
  - NAUSEA [None]
  - WEIGHT DECREASED [None]
